FAERS Safety Report 7882524-8 (Version None)
Quarter: 2011Q4

REPORT INFORMATION
  Report Type: 
  Country: None (occurrence: None)
  Receive Date: 20111101
  Receipt Date: 20110615
  Transmission Date: 20120403
  Serious: No
  Sender: FDA-Public Use
  Company Number: US-AMGEN-USASP2011030692

PATIENT
  Sex: Female
  Weight: 68 kg

DRUGS (4)
  1. ENBREL [Suspect]
     Indication: PRODUCT USED FOR UNKNOWN INDICATION
     Dosage: 50 MG, QWK
     Route: 058
  2. VITAMIN D [Concomitant]
     Dosage: 5000 IU, UNK
  3. CITRACAL + D [Concomitant]
     Dosage: UNK
  4. TYLENOL (CAPLET) [Concomitant]
     Dosage: 650 MG, UNK

REACTIONS (1)
  - INJECTION SITE URTICARIA [None]
